FAERS Safety Report 9760388 (Version 3)
Quarter: 2015Q3

REPORT INFORMATION
  Report Type: Spontaneous
  Country: US (occurrence: US)
  Receive Date: 20131216
  Receipt Date: 20150806
  Transmission Date: 20151125
  Serious: No
  Sender: FDA-Public Use
  Company Number: US-GILEAD-2010-0028936

PATIENT
  Age: 60 Year
  Sex: Female
  Weight: 81.65 kg

DRUGS (17)
  1. ADCIRCA [Concomitant]
     Active Substance: TADALAFIL
  2. OXYGEN. [Concomitant]
     Active Substance: OXYGEN
  3. NADOLOL. [Concomitant]
     Active Substance: NADOLOL
  4. DIAZEPAM. [Concomitant]
     Active Substance: DIAZEPAM
  5. NOVOLOG [Concomitant]
     Active Substance: INSULIN ASPART
  6. LETAIRIS [Suspect]
     Active Substance: AMBRISENTAN
     Indication: PULMONARY ARTERIAL HYPERTENSION
     Route: 048
     Dates: start: 20100326
  7. DILTIAZEM-D5W [Concomitant]
  8. LEVOTHYROXINE. [Concomitant]
     Active Substance: LEVOTHYROXINE
  9. LORTAB [Concomitant]
     Active Substance: ACETAMINOPHEN\HYDROCODONE BITARTRATE
  10. REVATIO [Concomitant]
     Active Substance: SILDENAFIL CITRATE
  11. AMBIEN CR [Concomitant]
     Active Substance: ZOLPIDEM TARTRATE
  12. LANTUS [Concomitant]
     Active Substance: INSULIN GLARGINE
  13. ALDACTONE [Concomitant]
     Active Substance: SPIRONOLACTONE
  14. LASIX [Concomitant]
     Active Substance: FUROSEMIDE
  15. OMEPRAZOLE. [Concomitant]
     Active Substance: OMEPRAZOLE
  16. PHENADOZ [Concomitant]
     Active Substance: PROMETHAZINE HYDROCHLORIDE
  17. TYLENOL PM EX-STR [Concomitant]

REACTIONS (2)
  - Unevaluable event [Unknown]
  - Swelling [Unknown]
